FAERS Safety Report 14642050 (Version 1)
Quarter: 2018Q1

REPORT INFORMATION
  Report Type: Spontaneous
  Country: US (occurrence: US)
  Receive Date: 20180315
  Receipt Date: 20180315
  Transmission Date: 20180509
  Serious: No
  Sender: FDA-Public Use
  Company Number: None

PATIENT
  Age: 39 Year
  Sex: Female
  Weight: 105.75 kg

DRUGS (12)
  1. COMBIVENT [Concomitant]
     Active Substance: ALBUTEROL SULFATE\IPRATROPIUM BROMIDE
  2. ADVAIR HFA [Concomitant]
     Active Substance: FLUTICASONE PROPIONATE\SALMETEROL XINAFOATE
  3. VITAMIN B12 [Concomitant]
     Active Substance: CYANOCOBALAMIN
  4. LAP BAND [Concomitant]
  5. IPRATROPIUM BROMIDE AND ALBUTEROL SULFATE INHALATION [Suspect]
     Active Substance: ALBUTEROL SULFATE\IPRATROPIUM BROMIDE
     Indication: ASTHMA
     Dosage: STRENGTH 0.5MG/3MG PER 3ML MG?          QUANTITY:1 VIAL;?
     Route: 055
     Dates: start: 20180310, end: 20180314
  6. PAXIL [Concomitant]
     Active Substance: PAROXETINE HYDROCHLORIDE
  7. DUONEB [Concomitant]
     Active Substance: ALBUTEROL SULFATE\IPRATROPIUM BROMIDE
  8. CPAP [Concomitant]
     Active Substance: DEVICE
  9. SINGULAIR [Concomitant]
     Active Substance: MONTELUKAST SODIUM
  10. IRON [Concomitant]
     Active Substance: IRON
  11. HYDROXYZINE [Concomitant]
     Active Substance: HYDROXYZINE HYDROCHLORIDE
  12. VITAMIN D3 [Concomitant]
     Active Substance: CHOLECALCIFEROL

REACTIONS (4)
  - Dry mouth [None]
  - Muscle spasms [None]
  - Dysuria [None]
  - Constipation [None]

NARRATIVE: CASE EVENT DATE: 20180314
